FAERS Safety Report 9275455 (Version 1)
Quarter: 2013Q1

REPORT INFORMATION
  Report Type: Spontaneous
  Country: US (occurrence: None)
  Receive Date: 20130322
  Receipt Date: 20130322
  Transmission Date: 20140127
  Serious: Yes (Other)
  Sender: FDA-Public Use
  Company Number: 54973 AE # 1289

PATIENT
  Age: 46 Year
  Sex: Female

DRUGS (1)
  1. HYLAND^S LEG CRAMPS TABLETS [Suspect]
     Indication: MUSCLE SPASMS
     Dosage: 3TAB1X/WEEKPRNCRAMPSX7YR

REACTIONS (3)
  - Hepatic cirrhosis [None]
  - Infection [None]
  - Autoimmune disorder [None]
